FAERS Safety Report 24351713 (Version 1)
Quarter: 2024Q3

REPORT INFORMATION
  Report Type: Spontaneous
  Country: CN (occurrence: CN)
  Receive Date: 20240923
  Receipt Date: 20240923
  Transmission Date: 20241016
  Serious: Yes (Other)
  Sender: ELI LILLY AND CO
  Company Number: CN-Merck Healthcare KGaA-2024048976

PATIENT
  Age: 78 Year
  Sex: Female
  Weight: 44 kg

DRUGS (4)
  1. ERBITUX [Suspect]
     Active Substance: CETUXIMAB
     Indication: Colon cancer metastatic
     Dosage: 120 MG, UNKNOWN
     Route: 041
     Dates: start: 20240618, end: 20240618
  2. ADEBRELIMAB [Suspect]
     Active Substance: ADEBRELIMAB
     Indication: Colon cancer metastatic
     Dosage: 900 MG, DAILY
     Route: 041
     Dates: start: 20240618, end: 20240618
  3. SODIUM CHLORIDE [Concomitant]
     Active Substance: SODIUM CHLORIDE
     Indication: Medication dilution
     Dosage: 250 ML, DAILY
     Route: 041
     Dates: start: 20240618, end: 20240618
  4. SODIUM CHLORIDE [Concomitant]
     Active Substance: SODIUM CHLORIDE
     Dosage: 380 ML, DAILY
     Route: 041
     Dates: start: 20240618, end: 20240618

REACTIONS (2)
  - Neutrophil count decreased [Recovered/Resolved]
  - White blood cell count decreased [Recovered/Resolved]

NARRATIVE: CASE EVENT DATE: 20240715
